FAERS Safety Report 7682083-9 (Version None)
Quarter: 2011Q3

REPORT INFORMATION
  Report Type: 
  Country: None (occurrence: None)
  Receive Date: 20110810
  Receipt Date: 20110729
  Transmission Date: 20111222
  Serious: Yes (Hospitalization)
  Sender: FDA-Public Use
  Company Number: 1000022611

PATIENT
  Age: 79 Year
  Sex: Female

DRUGS (7)
  1. LEVOTHYROXINE SODIUM [Concomitant]
  2. ATACAND [Concomitant]
  3. ZOMIG (ZOLMITRIPTAN) (ZOLMITRIPTAN) [Concomitant]
  4. MEMANTINE HYDROCHLORIDE [Suspect]
     Dosage: 1 DOSAGE FORMS
     Dates: start: 20110622, end: 20110622
  5. ARICEPT [Concomitant]
  6. DAFALGAN (PARACETAMOL) (PARACETAMOL) [Concomitant]
  7. CORGARD [Suspect]
     Dosage: 1 DOSAGE FORMS
     Dates: start: 20110622, end: 20110622

REACTIONS (5)
  - MALAISE [None]
  - BRADYCARDIA [None]
  - HYPOTENSION [None]
  - WRONG DRUG ADMINISTERED [None]
  - ATRIOVENTRICULAR BLOCK FIRST DEGREE [None]
